FAERS Safety Report 4556455-5 (Version None)
Quarter: 2005Q1

REPORT INFORMATION
  Report Type: 
  Country: None (occurrence: None)
  Receive Date: 20050114
  Receipt Date: 20050103
  Transmission Date: 20050727
  Serious: Yes (Other)
  Sender: FDA-Public Use
  Company Number: 2005002381

PATIENT
  Sex: Female
  Weight: 91.6266 kg

DRUGS (13)
  1. NEURONTIN [Suspect]
     Indication: NERVE INJURY
     Dosage: (300 MG), ORAL
     Route: 048
     Dates: start: 20000101
  2. WARFARIN SODIUM [Suspect]
     Indication: THROMBOSIS
  3. MORACIZINE HYDROCHLORIDE (MORACIZINE HYDROCHLORIDE) [Concomitant]
  4. ATENOLOL [Concomitant]
  5. ASPIRIN [Concomitant]
  6. NITROGLYCERIN [Concomitant]
  7. ATORVASTATIN (ATORVASTATIN) [Concomitant]
  8. PRINZIDE [Concomitant]
  9. FENOFIBRATE [Concomitant]
  10. LANSOPRAZOLE [Concomitant]
  11. LIDOCAINE HYDROCHLORIDE [Concomitant]
  12. FENTANYL [Concomitant]
  13. METOCLOPRAMIDE [Concomitant]

REACTIONS (8)
  - CARDIAC DISORDER [None]
  - CEREBROVASCULAR ACCIDENT [None]
  - ECHOCARDIOGRAM ABNORMAL [None]
  - GASTRIC ULCER HAEMORRHAGE [None]
  - PAIN [None]
  - TREATMENT NONCOMPLIANCE [None]
  - VASCULAR CALCIFICATION [None]
  - VOMITING [None]
